APPROVED DRUG PRODUCT: TRAL
Active Ingredient: HEXOCYCLIUM METHYLSULFATE
Strength: 25MG
Dosage Form/Route: TABLET;ORAL
Application: N010599 | Product #001
Applicant: ABBVIE INC
Approved: Approved Prior to Jan 1, 1982 | RLD: No | RS: No | Type: DISCN